FAERS Safety Report 6065255-9 (Version None)
Quarter: 2009Q1

REPORT INFORMATION
  Report Type: 
  Country: None (occurrence: None)
  Receive Date: 20090204
  Receipt Date: 20090128
  Transmission Date: 20090719
  Serious: Yes (Hospitalization)
  Sender: FDA-Public Use
  Company Number: US-GILEAD-2009-0019706

PATIENT
  Sex: Female
  Weight: 52.21 kg

DRUGS (10)
  1. LETAIRIS [Suspect]
     Indication: PULMONARY ARTERIAL HYPERTENSION
     Route: 048
     Dates: start: 20080901, end: 20081229
  2. REVATIO [Concomitant]
  3. KLOR-CON [Concomitant]
  4. FUROSEMIDE [Concomitant]
  5. ZETIA [Concomitant]
  6. SYNTHROID [Concomitant]
  7. METOCLOPRAM [Concomitant]
  8. NEXIUM [Concomitant]
  9. ALPRAZOLAM [Concomitant]
  10. ASPIRIN [Concomitant]
     Indication: PAIN

REACTIONS (3)
  - CARDIAC FAILURE CONGESTIVE [None]
  - FLUID RETENTION [None]
  - PLEURAL EFFUSION [None]
